FAERS Safety Report 15317825 (Version 2)
Quarter: 2018Q3

REPORT INFORMATION
  Report Type: Spontaneous
  Country: US (occurrence: US)
  Receive Date: 20180824
  Receipt Date: 20180907
  Transmission Date: 20181010
  Serious: No
  Sender: FDA-Public Use
  Company Number: PHEH2018US033851

PATIENT
  Sex: Female

DRUGS (3)
  1. LORAZEPAM TABLETS USP [Suspect]
     Active Substance: LORAZEPAM
     Indication: ANXIETY
     Dosage: 3 DF, QD
     Route: 065
  2. REMERON [Concomitant]
     Active Substance: MIRTAZAPINE
     Indication: PRODUCT USED FOR UNKNOWN INDICATION
     Dosage: UNK
     Route: 065
  3. SEROQUEL [Concomitant]
     Active Substance: QUETIAPINE FUMARATE
     Indication: PRODUCT USED FOR UNKNOWN INDICATION
     Dosage: UNK
     Route: 065

REACTIONS (5)
  - Palpitations [Unknown]
  - Dyspepsia [Unknown]
  - Drug ineffective [Unknown]
  - Headache [Unknown]
  - Product taste abnormal [Unknown]
